FAERS Safety Report 10272963 (Version 2)
Quarter: 2014Q3

REPORT INFORMATION
  Report Type: Spontaneous
  Country: JP (occurrence: JP)
  Receive Date: 20140702
  Receipt Date: 20140731
  Transmission Date: 20150326
  Serious: Yes (Other)
  Sender: FDA-Public Use
  Company Number: JP-ASTRAZENECA-2014SE47361

PATIENT
  Age: 29983 Day
  Sex: Male
  Weight: 50 kg

DRUGS (3)
  1. CRESTOR [Suspect]
     Active Substance: ROSUVASTATIN CALCIUM
     Indication: HYPERLIPIDAEMIA
     Route: 048
     Dates: start: 201404, end: 20140620
  2. VITAMINS NOS [Suspect]
     Active Substance: VITAMINS
     Indication: SPINAL COLUMN STENOSIS
     Route: 048
     Dates: start: 20111205
  3. LOXONIN [Suspect]
     Active Substance: LOXOPROFEN SODIUM
     Indication: SPINAL COLUMN STENOSIS
     Route: 048
     Dates: start: 20111205

REACTIONS (14)
  - Anaemia [Unknown]
  - Arthralgia [Unknown]
  - Skin tightness [Not Recovered/Not Resolved]
  - Muscular weakness [Not Recovered/Not Resolved]
  - Erythema [Not Recovered/Not Resolved]
  - Gait disturbance [Not Recovered/Not Resolved]
  - Dysstasia [Unknown]
  - Spinal column stenosis [Unknown]
  - Myoglobin blood increased [Unknown]
  - Hypoaesthesia [Not Recovered/Not Resolved]
  - Renal impairment [Unknown]
  - Weight bearing difficulty [Unknown]
  - Oedema peripheral [Not Recovered/Not Resolved]
  - Grip strength decreased [Unknown]

NARRATIVE: CASE EVENT DATE: 20140420
